FAERS Safety Report 8573155-5 (Version None)
Quarter: 2012Q3

REPORT INFORMATION
  Report Type: 
  Country: None (occurrence: None)
  Receive Date: 20120806
  Receipt Date: 20120727
  Transmission Date: 20120928
  Serious: Yes (Hospitalization)
  Sender: FDA-Public Use
  Company Number: US-BAYER-2012-076750

PATIENT
  Age: 21 Year
  Sex: Female
  Weight: 45.351 kg

DRUGS (10)
  1. DEXTROSE W/POTASSIUM CHLORIDE AND NACL [Concomitant]
     Route: 042
  2. YASMIN [Suspect]
  3. VICODIN [Concomitant]
     Dosage: 1
     Route: 048
  4. DECADRON PHOSPHATE [Concomitant]
     Dosage: 10 MG Q (EVERY) 8 HOURS, 3 DOSES
     Route: 042
  5. MAXALT [Concomitant]
  6. ROCEPHIN [Concomitant]
     Dosage: 1 GM EVERY 12 HRS
  7. OMNICEF [Concomitant]
     Dosage: 300 MG, TWICE A DAY, FOR 14 DAYS
     Dates: start: 20050725
  8. TYLENOL W/ CODEINE [Concomitant]
     Dosage: 1-2 TEASPOONS EVERY 4 HOURS AS NEEDED
     Dates: start: 20050723
  9. FLEXERIL [Concomitant]
  10. SODIUM CHLORIDE [Concomitant]
     Dosage: 1 L, UNK
     Route: 042

REACTIONS (1)
  - PULMONARY EMBOLISM [None]
